FAERS Safety Report 25139997 (Version 1)
Quarter: 2025Q1

REPORT INFORMATION
  Report Type: Spontaneous
  Country: FR (occurrence: FR)
  Receive Date: 20250331
  Receipt Date: 20250331
  Transmission Date: 20250409
  Serious: Yes (Other)
  Sender: MYLAN
  Company Number: None

PATIENT
  Age: 51 Year
  Sex: Male

DRUGS (5)
  1. LYRICA [Suspect]
     Active Substance: PREGABALIN
     Indication: Product used for unknown indication
     Dosage: 2 DOSAGE FORM, BID, 150 MG 1-0-1 USUALLY
  2. LYRICA [Suspect]
     Active Substance: PREGABALIN
     Dates: start: 20240328, end: 20240328
  3. BROMAZEPAM [Suspect]
     Active Substance: BROMAZEPAM
     Indication: Product used for unknown indication
     Dosage: QD, 5 TO 6 TABLETS PER DAY
  4. PRAZEPAM [Suspect]
     Active Substance: PRAZEPAM
     Indication: Product used for unknown indication
     Dosage: 6 DOSAGE FORM, QD, 6 TABLETS /D IF NO LEXOMIL
  5. DAFALGAN CODEINE [Suspect]
     Active Substance: ACETAMINOPHEN\CODEINE PHOSPHATE
     Indication: Product used for unknown indication

REACTIONS (7)
  - Drug use disorder [Not Recovered/Not Resolved]
  - Toxicity to various agents [Recovered/Resolved]
  - Amnestic disorder [Not Recovered/Not Resolved]
  - Sleep disorder [Recovered/Resolved]
  - Withdrawal syndrome [Recovered/Resolved]
  - Diarrhoea [Recovered/Resolved]
  - Intentional product misuse [Not Recovered/Not Resolved]

NARRATIVE: CASE EVENT DATE: 20240328
